FAERS Safety Report 11891300 (Version 1)
Quarter: 2016Q1

REPORT INFORMATION
  Report Type: Spontaneous
  Country: US (occurrence: None)
  Receive Date: 20160105
  Receipt Date: 20160105
  Transmission Date: 20160526
  Serious: Yes (Life-Threatening, Hospitalization)
  Sender: FDA-Public Use
  Company Number: None

PATIENT
  Age: 23 Year
  Sex: Male
  Weight: 64.9 kg

DRUGS (6)
  1. ADCETRIS [Suspect]
     Active Substance: BRENTUXIMAB VEDOTIN
     Indication: HODGKIN^S DISEASE
     Route: 042
     Dates: start: 20150821
  2. ACYCLOVIR (ZOVIRAX) [Concomitant]
  3. CYANOCOBALAMIN (VITAMIN B-12) [Concomitant]
  4. ADCETRIS [Suspect]
     Active Substance: BRENTUXIMAB VEDOTIN
     Indication: DISEASE RECURRENCE
     Route: 042
     Dates: start: 20150821
  5. CHOLECALCIFEROL (VITAMIN D3) [Concomitant]
  6. CLINDAMYCIN (CLEOCIN) [Concomitant]

REACTIONS (4)
  - Anaphylactic reaction [None]
  - Loss of consciousness [None]
  - Nausea [None]
  - Vomiting [None]

NARRATIVE: CASE EVENT DATE: 20151130
